FAERS Safety Report 18923547 (Version 1)
Quarter: 2021Q1

REPORT INFORMATION
  Report Type: Spontaneous
  Country: NL (occurrence: NL)
  Receive Date: 20210222
  Receipt Date: 20210222
  Transmission Date: 20210420
  Serious: Yes (Life-Threatening, Hospitalization)
  Sender: FDA-Public Use
  Company Number: NL-BAUSCH-BL-2021-005652

PATIENT
  Sex: Male
  Weight: 115 kg

DRUGS (2)
  1. IBUPROFEN. [Concomitant]
     Active Substance: IBUPROFEN
     Indication: PRODUCT USED FOR UNKNOWN INDICATION
  2. DICLOFENAC?NATRIUM [Suspect]
     Active Substance: DICLOFENAC SODIUM
     Indication: PRODUCT USED FOR UNKNOWN INDICATION
     Dosage: ONBEKEND
     Route: 065
     Dates: start: 20210205, end: 20210205

REACTIONS (3)
  - Arteriospasm coronary [Recovering/Resolving]
  - Myocardial ischaemia [Recovering/Resolving]
  - Anaphylactic shock [Recovering/Resolving]
